FAERS Safety Report 14886021 (Version 3)
Quarter: 2019Q3

REPORT INFORMATION
  Report Type: Spontaneous
  Country: US (occurrence: US)
  Receive Date: 20180512
  Receipt Date: 20190723
  Transmission Date: 20191004
  Serious: Yes (Hospitalization, Other)
  Sender: FDA-Public Use
  Company Number: US-SA-2018SA133723

PATIENT
  Age: 45 Year
  Sex: Female
  Weight: 60.32 kg

DRUGS (14)
  1. AUBAGIO [Suspect]
     Active Substance: TERIFLUNOMIDE
     Indication: MULTIPLE SCLEROSIS
     Dosage: 14 MG,QD
     Route: 048
     Dates: start: 20180315
  2. METHOTREXATE. [Concomitant]
     Active Substance: METHOTREXATE
     Dosage: UNK
  3. VITAMIN B12 [Concomitant]
     Active Substance: CYANOCOBALAMIN
     Dosage: UNK
  4. VITAMIN D3 [Concomitant]
     Active Substance: CHOLECALCIFEROL
     Dosage: UNK
  5. BACLOFEN. [Concomitant]
     Active Substance: BACLOFEN
  6. RANITIDINE HCL [Concomitant]
     Active Substance: RANITIDINE HYDROCHLORIDE
  7. ACIPHEX [Concomitant]
     Active Substance: RABEPRAZOLE SODIUM
  8. TYLENOL [Concomitant]
     Active Substance: ACETAMINOPHEN
  9. CLARITIN-D NOS [Concomitant]
     Active Substance: LORATADINE\PSEUDOEPHEDRINE SULFATE
  10. IRON [Concomitant]
     Active Substance: IRON
  11. CLOBETASOL [Concomitant]
     Active Substance: CLOBETASOL
  12. MELOXICAM. [Concomitant]
     Active Substance: MELOXICAM
  13. CLARITIN [CLARITHROMYCIN] [Concomitant]
     Active Substance: CLARITHROMYCIN
  14. PANTOPRAZOLE SODIUM. [Concomitant]
     Active Substance: PANTOPRAZOLE SODIUM

REACTIONS (7)
  - Hysterectomy [Unknown]
  - Paranasal sinus discomfort [Unknown]
  - Pyrexia [Unknown]
  - Hepatic enzyme increased [Not Recovered/Not Resolved]
  - Nasal congestion [Unknown]
  - Pulmonary congestion [Unknown]
  - Cough [Unknown]

NARRATIVE: CASE EVENT DATE: 2019
